FAERS Safety Report 6959060-6 (Version None)
Quarter: 2010Q3

REPORT INFORMATION
  Report Type: 
  Country: None (occurrence: None)
  Receive Date: 20100831
  Receipt Date: 20100823
  Transmission Date: 20110219
  Serious: Yes (Other)
  Sender: FDA-Public Use
  Company Number: CHPA2010BR13646

PATIENT
  Age: 3 Year
  Sex: Male

DRUGS (1)
  1. BENEFIBER UNKNOWN (NCH) [Suspect]
     Dosage: UNK, USING DURING 1 YEAR
     Route: 065

REACTIONS (4)
  - CONSTIPATION [None]
  - GASTRIC LAVAGE [None]
  - INCORRECT DOSE ADMINISTERED [None]
  - OVERDOSE [None]
